FAERS Safety Report 18480400 (Version 1)
Quarter: 2020Q4

REPORT INFORMATION
  Report Type: Spontaneous
  Country: US (occurrence: US)
  Receive Date: 20201109
  Receipt Date: 20201109
  Transmission Date: 20210114
  Serious: Yes (Hospitalization)
  Sender: FDA-Public Use
  Company Number: None

PATIENT
  Age: 71 Year
  Sex: Male

DRUGS (16)
  1. BENZONATATE. [Concomitant]
     Active Substance: BENZONATATE
  2. FINASTERIDE. [Concomitant]
     Active Substance: FINASTERIDE
  3. ACYCLOVIR. [Concomitant]
     Active Substance: ACYCLOVIR
  4. MYCOPHENOLATE [Concomitant]
     Active Substance: MYCOPHENOLIC ACID
  5. NYSTATIN. [Concomitant]
     Active Substance: NYSTATIN
  6. OXYBUTYNIN. [Concomitant]
     Active Substance: OXYBUTYNIN CHLORIDE
  7. VITAMIN D [Concomitant]
     Active Substance: VITAMIN D NOS
  8. PREDNISONE- NOT DISPENSED BY OUR PHARMACY BEFORE [Suspect]
     Active Substance: PREDNISONE
     Route: 048
  9. ALLOPURINOL. [Concomitant]
     Active Substance: ALLOPURINOL
  10. FAMOTIDINE. [Concomitant]
     Active Substance: FAMOTIDINE
  11. METOPROLOL. [Concomitant]
     Active Substance: METOPROLOL
  12. TACROLIMUS. [Concomitant]
     Active Substance: TACROLIMUS
  13. ATORVASTATIN [Concomitant]
     Active Substance: ATORVASTATIN
  14. LEVOTHYROXINE. [Concomitant]
     Active Substance: LEVOTHYROXINE
  15. PANTOPRAZOLE [Concomitant]
     Active Substance: PANTOPRAZOLE
  16. SMZ-TMP [Concomitant]
     Active Substance: SULFAMETHOXAZOLE\TRIMETHOPRIM

REACTIONS (1)
  - Hospitalisation [None]

NARRATIVE: CASE EVENT DATE: 20201106
